FAERS Safety Report 7770481-4 (Version None)
Quarter: 2011Q3

REPORT INFORMATION
  Report Type: 
  Country: None (occurrence: None)
  Receive Date: 20110922
  Receipt Date: 20100802
  Transmission Date: 20111222
  Serious: No
  Sender: FDA-Public Use
  Company Number: US-ASTRAZENECA-2010SE36099

PATIENT
  Age: 53 Year
  Sex: Male

DRUGS (3)
  1. PAROXETINE HCL [Concomitant]
  2. SEROQUEL [Suspect]
     Route: 048
     Dates: start: 20091230
  3. BYSTOLIC [Concomitant]
     Indication: HYPERTENSION

REACTIONS (2)
  - HEPATIC STEATOSIS [None]
  - ALANINE AMINOTRANSFERASE INCREASED [None]
